FAERS Safety Report 5331612-9 (Version None)
Quarter: 2007Q2

REPORT INFORMATION
  Report Type: 
  Country: None (occurrence: None)
  Receive Date: 20070522
  Receipt Date: 20070510
  Transmission Date: 20071010
  Serious: Yes (Other)
  Sender: FDA-Public Use
  Company Number: BE-PFIZER INC-2007038432

PATIENT
  Sex: Male

DRUGS (2)
  1. CHAMPIX [Suspect]
     Indication: EX-SMOKER
     Route: 048
  2. ESCITALOPRAM OXALATE [Interacting]
     Indication: DEPRESSION

REACTIONS (3)
  - DRUG INTERACTION [None]
  - IRRITABILITY [None]
  - MANIA [None]
